FAERS Safety Report 24799505 (Version 2)
Quarter: 2025Q1

REPORT INFORMATION
  Report Type: Spontaneous
  Country: CN (occurrence: CN)
  Receive Date: 20250102
  Receipt Date: 20250122
  Transmission Date: 20250408
  Serious: Yes (Other)
  Sender: Phathom Pharmaceuticals
  Company Number: CN-PHATHOM PHARMACEUTICALS INC.-2024PHT01582

PATIENT
  Sex: Male

DRUGS (5)
  1. VONOPRAZAN [Suspect]
     Active Substance: VONOPRAZAN
     Indication: Gastrooesophageal reflux disease
     Dosage: 20 MG, 1X/DAY
     Route: 048
  2. ASPIRIN [Concomitant]
     Active Substance: ASPIRIN
  3. ATORVASTATIN [Concomitant]
     Active Substance: ATORVASTATIN
  4. ZOPICLONE [Concomitant]
     Active Substance: ZOPICLONE
  5. TEPRENONE [Concomitant]
     Active Substance: TEPRENONE

REACTIONS (2)
  - Facial paralysis [Recovered/Resolved]
  - Pruritus [Recovered/Resolved]
